FAERS Safety Report 25750152 (Version 3)
Quarter: 2025Q4

REPORT INFORMATION
  Report Type: Report from Study
  Country: US (occurrence: US)
  Receive Date: 20250902
  Receipt Date: 20251007
  Transmission Date: 20260119
  Serious: No
  Sender: SANOFI AVENTIS
  Company Number: US-SA-2025SA259553

PATIENT
  Age: 23 Year
  Sex: Female

DRUGS (2)
  1. IMIGLUCERASE [Suspect]
     Active Substance: IMIGLUCERASE
     Indication: Gaucher^s disease
     Dosage: 3600 (UNITS NOT PROVIDED) TOTAL DOSE ADMINISTERED, QOW
     Route: 058
     Dates: start: 201712
  2. IMIGLUCERASE [Suspect]
     Active Substance: IMIGLUCERASE
     Dosage: 3600 (UNITS NOT PROVIDED) TOTAL DOSE ADMINISTERED, QOW
     Route: 058
     Dates: start: 202103

REACTIONS (5)
  - Joint range of motion decreased [Unknown]
  - Muscular weakness [Unknown]
  - Joint swelling [Unknown]
  - Arthritis [Not Recovered/Not Resolved]
  - Arthralgia [Not Recovered/Not Resolved]
